FAERS Safety Report 23252911 (Version 1)
Quarter: 2023Q4

REPORT INFORMATION
  Report Type: Spontaneous
  Country: FR (occurrence: FR)
  Receive Date: 20231201
  Receipt Date: 20231201
  Transmission Date: 20240109
  Serious: Yes (Life-Threatening, Other)
  Sender: FDA-Public Use
  Company Number: None

PATIENT
  Age: 65 Year
  Sex: Female
  Weight: 69 kg

DRUGS (6)
  1. PACLITAXEL [Suspect]
     Active Substance: PACLITAXEL
     Indication: Invasive ductal breast carcinoma
     Dosage: 150 MG, WEEKLY
     Route: 042
     Dates: start: 20230824
  2. EPIRUBICIN HYDROCHLORIDE [Suspect]
     Active Substance: EPIRUBICIN HYDROCHLORIDE
     Indication: Invasive ductal breast carcinoma
     Dosage: 140 MG EVERY 2 WEEKS
     Route: 042
     Dates: start: 20230622, end: 20230803
  3. CYCLOPHOSPHAMIDE [Suspect]
     Active Substance: CYCLOPHOSPHAMIDE
     Indication: Invasive ductal breast carcinoma
     Dosage: 1400 MG EVERY 2 WEEKS
     Route: 042
     Dates: start: 20230622, end: 20230803
  4. METOPROLOL ARROW [Concomitant]
     Indication: Hypertension
     Dosage: 100 MG, 1X/DAY
  5. PRAVASTATIN SODIUM [Concomitant]
     Active Substance: PRAVASTATIN SODIUM
     Indication: Dyslipidaemia
     Dosage: 40 MG, 1X/DAY
  6. AMLODIPINE AENORASIS [Concomitant]
     Indication: Hypertension
     Dosage: 5 MG, 1X/DAY

REACTIONS (2)
  - Aortic dissection [Recovered/Resolved with Sequelae]
  - Condition aggravated [Recovered/Resolved with Sequelae]

NARRATIVE: CASE EVENT DATE: 20230919
